FAERS Safety Report 8216762-1 (Version None)
Quarter: 2012Q1

REPORT INFORMATION
  Report Type: 
  Country: None (occurrence: None)
  Receive Date: 20120316
  Receipt Date: 20120306
  Transmission Date: 20120608
  Serious: Yes (Other)
  Sender: FDA-Public Use
  Company Number: US-ROCHE-718585

PATIENT
  Sex: Male
  Weight: 190 kg

DRUGS (1)
  1. ACCUTANE [Suspect]
     Indication: ACNE
     Route: 065
     Dates: start: 20030501, end: 20030730

REACTIONS (5)
  - COLITIS ULCERATIVE [None]
  - GASTROINTESTINAL INJURY [None]
  - INTESTINAL OBSTRUCTION [None]
  - BLOOD TRIGLYCERIDES INCREASED [None]
  - INFLAMMATORY BOWEL DISEASE [None]
